FAERS Safety Report 18296569 (Version 1)
Quarter: 2020Q3

REPORT INFORMATION
  Report Type: Spontaneous
  Country: NG (occurrence: NG)
  Receive Date: 20200922
  Receipt Date: 20200922
  Transmission Date: 20201103
  Serious: Yes (Other)
  Sender: FDA-Public Use
  Company Number: NVSC2020NG254883

PATIENT
  Age: 26 Year
  Sex: Male

DRUGS (1)
  1. FLOTAC [Suspect]
     Active Substance: DICLOFENAC SODIUM
     Indication: MYALGIA
     Dosage: 75 MG, BID
     Route: 048
     Dates: start: 20101116, end: 20121104

REACTIONS (1)
  - Ulcer [Recovered/Resolved with Sequelae]
